FAERS Safety Report 17863121 (Version 2)
Quarter: 2020Q2

REPORT INFORMATION
  Report Type: Report from Study
  Country: CA (occurrence: CA)
  Receive Date: 20200604
  Receipt Date: 20200611
  Transmission Date: 20200714
  Serious: Yes (Other)
  Sender: FDA-Public Use
  Company Number: CA-BAUSCH-BL-2020-014118

PATIENT
  Age: 17 Year
  Sex: Male

DRUGS (3)
  1. SILIQ [Suspect]
     Active Substance: BRODALUMAB
     Indication: PUSTULAR PSORIASIS
     Dosage: 210MG/ 1.5 ML
     Route: 058
     Dates: start: 20200508, end: 20200522
  2. SILIQ [Suspect]
     Active Substance: BRODALUMAB
     Indication: PSORIASIS
  3. SILIQ [Suspect]
     Active Substance: BRODALUMAB
     Indication: OFF LABEL USE
     Dosage: 210MG/ 1.5 ML
     Route: 058
     Dates: start: 202006

REACTIONS (6)
  - Immunosuppression [Recovered/Resolved]
  - Injection site pain [Not Recovered/Not Resolved]
  - Off label use [Unknown]
  - Psoriasis [Recovered/Resolved]
  - Nasopharyngitis [Recovered/Resolved]
  - Product use issue [Unknown]

NARRATIVE: CASE EVENT DATE: 202005
